FAERS Safety Report 9970714 (Version 1)
Quarter: 2014Q1

REPORT INFORMATION
  Report Type: Spontaneous
  Country: US (occurrence: None)
  Receive Date: 20140305
  Receipt Date: 20140305
  Transmission Date: 20141002
  Serious: Yes (Disabling)
  Sender: FDA-Public Use
  Company Number: None

PATIENT
  Age: 48 Year
  Sex: Male
  Weight: 97.52 kg

DRUGS (4)
  1. FINASTERIDE [Suspect]
     Indication: BENIGN PROSTATIC HYPERPLASIA
     Route: 048
     Dates: start: 20081209, end: 20110209
  2. FISH OIL [Concomitant]
  3. VITAMIN D [Concomitant]
  4. COLACE [Concomitant]

REACTIONS (2)
  - Erectile dysfunction [None]
  - Blood testosterone decreased [None]
